FAERS Safety Report 7122618-8 (Version None)
Quarter: 2010Q4

REPORT INFORMATION
  Report Type: 
  Country: None (occurrence: None)
  Receive Date: 20101124
  Receipt Date: 20101117
  Transmission Date: 20110411
  Serious: Yes (Other)
  Sender: FDA-Public Use
  Company Number: US-ABBOTT-10P-163-0686203-00

PATIENT
  Age: 55 Year
  Sex: Female
  Weight: 61 kg

DRUGS (3)
  1. HUMIRA [Suspect]
     Indication: RHEUMATOID ARTHRITIS
     Dates: start: 20100901, end: 20101101
  2. CELEBREX [Suspect]
     Indication: RHEUMATOID ARTHRITIS
     Route: 048
     Dates: start: 20060101
  3. METHOTREXATE [Suspect]
     Indication: RHEUMATOID ARTHRITIS
     Dates: start: 20100901, end: 20101001

REACTIONS (7)
  - DRUG INEFFECTIVE [None]
  - JOINT RANGE OF MOTION DECREASED [None]
  - MALAISE [None]
  - MENTAL IMPAIRMENT [None]
  - MOBILITY DECREASED [None]
  - NAUSEA [None]
  - PAIN [None]
